FAERS Safety Report 7434731-6 (Version None)
Quarter: 2011Q2

REPORT INFORMATION
  Report Type: 
  Country: None (occurrence: None)
  Receive Date: 20110425
  Receipt Date: 20110419
  Transmission Date: 20111010
  Serious: Yes (Other)
  Sender: FDA-Public Use
  Company Number: US-PFIZER INC-2011068169

PATIENT
  Sex: Female
  Weight: 117 kg

DRUGS (6)
  1. ALBUTEROL SULFATE [Concomitant]
     Indication: ASTHMA
     Dosage: UNK
  2. QVAR 40 [Concomitant]
     Indication: ASTHMA
     Dosage: UNK
  3. EFFEXOR XR [Suspect]
     Indication: DEPRESSION
     Dosage: 150 MG, 1X/DAY
     Route: 048
     Dates: start: 20100101
  4. EFFEXOR XR [Suspect]
     Indication: ANXIETY
  5. CLONAZEPAM [Concomitant]
     Indication: ANXIETY
     Dosage: 2MG TO 4MG, AS NEEDED
  6. CLONAZEPAM [Concomitant]
     Indication: PANIC ATTACK

REACTIONS (1)
  - WITHDRAWAL SYNDROME [None]
